FAERS Safety Report 7022494-8 (Version None)
Quarter: 2010Q3

REPORT INFORMATION
  Report Type: 
  Country: None (occurrence: None)
  Receive Date: 20100930
  Receipt Date: 20100930
  Transmission Date: 20110219
  Serious: Yes (Other)
  Sender: FDA-Public Use
  Company Number: CN-ROCHE-730054

PATIENT
  Age: 50 Year
  Sex: Male

DRUGS (2)
  1. XELODA [Suspect]
     Indication: COLON CANCER
     Route: 048
     Dates: start: 20091001, end: 20100201
  2. OXALIPLATIN [Concomitant]
     Indication: COLON CANCER
     Dates: start: 20091001, end: 20100201

REACTIONS (2)
  - DISEASE RECURRENCE [None]
  - PLATELET COUNT DECREASED [None]
